FAERS Safety Report 5635277-8 (Version None)
Quarter: 2008Q1

REPORT INFORMATION
  Report Type: 
  Country: None (occurrence: None)
  Receive Date: 20080222
  Receipt Date: 20080215
  Transmission Date: 20080703
  Serious: Yes (Other)
  Sender: FDA-Public Use
  Company Number: JP-PFIZER INC-2007079542

PATIENT
  Age: 76 Year
  Sex: Female

DRUGS (5)
  1. AROMASIN [Suspect]
     Indication: BREAST CANCER
     Route: 048
     Dates: start: 20060929, end: 20070920
  2. CYANOCOBALAMIN [Concomitant]
  3. MOBIC [Concomitant]
  4. MUCOSTA [Concomitant]
  5. RISEDRONATE SODIUM HYDRATE [Concomitant]

REACTIONS (1)
  - INTERSTITIAL LUNG DISEASE [None]
